FAERS Safety Report 5755916-0 (Version None)
Quarter: 2008Q2

REPORT INFORMATION
  Report Type: 
  Country: None (occurrence: None)
  Receive Date: 20080602
  Receipt Date: 20080521
  Transmission Date: 20081010
  Serious: Yes (Disabling, Other)
  Sender: FDA-Public Use
  Company Number: US-ELI_LILLY_AND_COMPANY-US200805004326

PATIENT
  Sex: Female

DRUGS (1)
  1. EVISTA [Suspect]
     Dosage: 60 MG, UNK

REACTIONS (7)
  - DISABILITY [None]
  - DYSPNOEA [None]
  - HIP ARTHROPLASTY [None]
  - MUSCLE SPASMS [None]
  - PAIN IN EXTREMITY [None]
  - SPINAL FUSION SURGERY [None]
  - VULVOVAGINAL DRYNESS [None]
